FAERS Safety Report 5066074-2 (Version None)
Quarter: 2006Q3

REPORT INFORMATION
  Report Type: 
  Country: None (occurrence: None)
  Receive Date: 20060726
  Receipt Date: 20060717
  Transmission Date: 20061208
  Serious: Yes (Other)
  Sender: FDA-Public Use
  Company Number: 2006088176

PATIENT
  Sex: Female
  Weight: 63.5036 kg

DRUGS (4)
  1. DRAMAMINE [Suspect]
     Indication: DIZZINESS
     Dosage: 1 TABLET ONCE TO TWICE DAILY, ON AND OFF, ORAL
     Route: 048
     Dates: start: 19560101
  2. BONINE [Suspect]
     Dosage: DAILY, ORAL
     Route: 048
  3. ACETYLSALICYLIC ACID SRT [Concomitant]
  4. LISINOPRIL [Concomitant]

REACTIONS (1)
  - TRANSIENT ISCHAEMIC ATTACK [None]
